FAERS Safety Report 14215426 (Version 2)
Quarter: 2018Q2

REPORT INFORMATION
  Report Type: Spontaneous
  Country: FR (occurrence: FR)
  Receive Date: 20171122
  Receipt Date: 20180529
  Transmission Date: 20180711
  Serious: Yes (Hospitalization)
  Sender: FDA-Public Use
  Company Number: FR-MERCK KGAA-2034870

PATIENT
  Age: 33 Year
  Sex: Female

DRUGS (1)
  1. NOVOTHYROX [Suspect]
     Active Substance: LEVOTHYROXINE SODIUM
     Indication: HYPOTHYROIDISM
     Route: 048
     Dates: start: 20170501, end: 20170701

REACTIONS (24)
  - Depression [Not Recovered/Not Resolved]
  - Depersonalisation/derealisation disorder [Not Recovered/Not Resolved]
  - Vision blurred [None]
  - Insomnia [None]
  - Asthenia [None]
  - Vertigo [Not Recovered/Not Resolved]
  - Blood thyroid stimulating hormone increased [Not Recovered/Not Resolved]
  - Myalgia [Not Recovered/Not Resolved]
  - Anhedonia [None]
  - Loss of libido [None]
  - Diffuse alopecia [Not Recovered/Not Resolved]
  - Tinnitus [Not Recovered/Not Resolved]
  - Visual impairment [Not Recovered/Not Resolved]
  - Headache [Not Recovered/Not Resolved]
  - Disturbance in attention [None]
  - Social avoidant behaviour [None]
  - Glare [None]
  - Fatigue [Not Recovered/Not Resolved]
  - Throat irritation [None]
  - Anxiety [None]
  - Constipation [None]
  - Urinary tract infection [None]
  - Anger [None]
  - Personal relationship issue [None]

NARRATIVE: CASE EVENT DATE: 20170601
